FAERS Safety Report 8006857-X (Version None)
Quarter: 2011Q4

REPORT INFORMATION
  Report Type: 
  Country: None (occurrence: None)
  Receive Date: 20111227
  Receipt Date: 20111219
  Transmission Date: 20120403
  Serious: Yes (Hospitalization, Other)
  Sender: FDA-Public Use
  Company Number: FR-JNJFOC-20111100481

PATIENT
  Age: 79 Year
  Sex: Female

DRUGS (8)
  1. LEVOFLOXACIN [Suspect]
     Indication: CATARACT OPERATION
     Route: 042
     Dates: start: 20110707, end: 20110707
  2. LEVOFLOXACIN [Suspect]
     Indication: PREOPERATIVE CARE
     Route: 042
     Dates: start: 20110707, end: 20110707
  3. STERDEX [Concomitant]
     Route: 065
     Dates: start: 20110707, end: 20110715
  4. PHYLARM [Concomitant]
     Route: 065
     Dates: start: 20110707, end: 20110715
  5. AUGMENTIN [Concomitant]
     Indication: BRONCHITIS
     Route: 065
     Dates: start: 20110709, end: 20110717
  6. TOBRADEX [Concomitant]
     Route: 065
     Dates: start: 20110707, end: 20110715
  7. ACETAZOLAMIDE [Suspect]
     Indication: PREOPERATIVE CARE
     Route: 042
     Dates: start: 20110707, end: 20110715
  8. ACETAZOLAMIDE [Suspect]
     Indication: CATARACT OPERATION
     Route: 048
     Dates: end: 20110715

REACTIONS (1)
  - ACUTE GENERALISED EXANTHEMATOUS PUSTULOSIS [None]
